FAERS Safety Report 9643031 (Version 2)
Quarter: 2013Q4

REPORT INFORMATION
  Report Type: Spontaneous
  Country: GB (occurrence: GB)
  Receive Date: 20131024
  Receipt Date: 20131029
  Transmission Date: 20140711
  Serious: Yes (Death)
  Sender: FDA-Public Use
  Company Number: GB-JNJFOC-20130901834

PATIENT
  Age: 68 Year
  Sex: 0

DRUGS (7)
  1. DOXORUBICIN [Suspect]
     Indication: B-CELL LYMPHOMA
     Route: 042
  2. DOXORUBICIN [Suspect]
     Indication: B-CELL LYMPHOMA
     Route: 039
  3. CYCLOPHOSPHAMIDE [Suspect]
     Indication: B-CELL LYMPHOMA
     Route: 037
  4. RITUXIMAB [Suspect]
     Indication: B-CELL LYMPHOMA
     Route: 037
  5. ONCOVIN [Suspect]
     Indication: B-CELL LYMPHOMA
     Route: 037
  6. PREDNISOLONE [Suspect]
     Indication: B-CELL LYMPHOMA
     Route: 037
  7. METHOTREXATE [Suspect]
     Indication: B-CELL LYMPHOMA
     Route: 037

REACTIONS (1)
  - Subdural haematoma [Fatal]
